FAERS Safety Report 18266731 (Version 1)
Quarter: 2020Q3

REPORT INFORMATION
  Report Type: Spontaneous
  Country: US (occurrence: US)
  Receive Date: 20200915
  Receipt Date: 20200915
  Transmission Date: 20201103
  Serious: No
  Sender: FDA-Public Use
  Company Number: US-TEVA-2020-US-1827509

PATIENT
  Age: 38 Year
  Sex: Male

DRUGS (2)
  1. AUSTEDO [Suspect]
     Active Substance: DEUTETRABENAZINE
     Dosage: 24 MILLIGRAM DAILY;
     Route: 048
     Dates: start: 202007
  2. RISPERIDONE. [Interacting]
     Active Substance: RISPERIDONE
     Route: 065

REACTIONS (2)
  - Swelling [None]
  - Drug interaction [None]

NARRATIVE: CASE EVENT DATE: 20200904
